FAERS Safety Report 9814971 (Version 4)
Quarter: 2014Q1

REPORT INFORMATION
  Report Type: Spontaneous
  Country: DE (occurrence: DE)
  Receive Date: 20140113
  Receipt Date: 20140304
  Transmission Date: 20141002
  Serious: Yes (Hospitalization, Other)
  Sender: FDA-Public Use
  Company Number: DE-AMGEN-DEUSP2014001814

PATIENT
  Age: 76 Year
  Sex: Female

DRUGS (3)
  1. ENBREL [Suspect]
     Indication: RHEUMATOID ARTHRITIS
     Dosage: 50 MG, WEEKLY
     Route: 065
     Dates: start: 20131120, end: 2014
  2. PREDNISOLON                        /00016201/ [Concomitant]
     Dosage: UNK
  3. MTX                                /00113802/ [Concomitant]
     Dosage: UNK

REACTIONS (4)
  - Cardiac disorder [Recovered/Resolved]
  - Oedema peripheral [Recovered/Resolved]
  - Rheumatoid arthritis [Unknown]
  - Hypertension [Recovered/Resolved]
